FAERS Safety Report 4748368-0 (Version None)
Quarter: 2005Q3

REPORT INFORMATION
  Report Type: 
  Country: None (occurrence: None)
  Receive Date: 20050818
  Receipt Date: 20050718
  Transmission Date: 20060218
  Serious: Yes (Death, Hospitalization)
  Sender: FDA-Public Use
  Company Number: US-MERCK-0507USA03031

PATIENT
  Age: 73 Year
  Sex: Female
  Weight: 59 kg

DRUGS (8)
  1. VIOXX [Suspect]
     Indication: ARTHRITIS
     Route: 048
     Dates: start: 19990101, end: 20030718
  2. SYNTHROID [Concomitant]
     Route: 065
  3. ACCUPRIL [Concomitant]
     Route: 065
  4. TOPROL-XL [Concomitant]
     Route: 065
  5. ALLOPURINOL [Concomitant]
     Route: 048
  6. NIFEDIPINE [Concomitant]
     Route: 065
  7. BUMETANIDE [Concomitant]
     Route: 065
  8. CATAPRES [Concomitant]
     Route: 065

REACTIONS (3)
  - MYOCARDIAL INFARCTION [None]
  - RENAL FAILURE [None]
  - THROMBOCYTOPENIC PURPURA [None]
